FAERS Safety Report 9223488 (Version 1)
Quarter: 2013Q2

REPORT INFORMATION
  Report Type: Spontaneous
  Country: US (occurrence: US)
  Receive Date: 20130410
  Receipt Date: 20130410
  Transmission Date: 20140414
  Serious: Yes (Hospitalization)
  Sender: FDA-Public Use
  Company Number: US-OTSUKA-US-2013-10575

PATIENT
  Age: 70 Year
  Sex: Female

DRUGS (2)
  1. SAMSCA [Suspect]
     Indication: INAPPROPRIATE ANTIDIURETIC HORMONE SECRETION
     Dosage: 15 MG MILLIGRAM(S), UNK
     Dates: start: 201303, end: 201303
  2. SAMSCA [Suspect]
     Indication: HYPONATRAEMIA

REACTIONS (2)
  - Hepatic failure [Unknown]
  - Hypotension [Recovered/Resolved]
